FAERS Safety Report 24555302 (Version 1)
Quarter: 2024Q4

REPORT INFORMATION
  Report Type: Spontaneous
  Country: CN (occurrence: CN)
  Receive Date: 20241028
  Receipt Date: 20241028
  Transmission Date: 20250114
  Serious: Yes (Other)
  Sender: ABBVIE
  Company Number: CN-LUNDBECK-DKLU4005639

PATIENT

DRUGS (3)
  1. ESCITALOPRAM OXALATE [Suspect]
     Active Substance: ESCITALOPRAM OXALATE
     Indication: Product used for unknown indication
     Dosage: INTENTIONAL OVERDOSE: 14 TABLETS
     Route: 048
     Dates: start: 20240506, end: 20240506
  2. LORAZEPAM [Suspect]
     Active Substance: LORAZEPAM
     Indication: Product used for unknown indication
     Dosage: 14 DOSAGE FORM
     Route: 048
     Dates: start: 20240506, end: 20240506
  3. ZALEPLON [Suspect]
     Active Substance: ZALEPLON
     Indication: Micturition disorder
     Dosage: 7 DOSAGE FORM
     Route: 048
     Dates: start: 20240506, end: 20240506

REACTIONS (3)
  - Toxicity to various agents [Recovering/Resolving]
  - Intentional self-injury [Unknown]
  - Intentional overdose [Unknown]

NARRATIVE: CASE EVENT DATE: 20240506
